FAERS Safety Report 25715025 (Version 4)
Quarter: 2025Q4

REPORT INFORMATION
  Report Type: Report from Study
  Country: US (occurrence: US)
  Receive Date: 20250822
  Receipt Date: 20251203
  Transmission Date: 20260117
  Serious: No
  Sender: MALLINCKRODT
  Company Number: US-MALLINCKRODT-MNK202505189

PATIENT
  Age: 37 Year
  Sex: Female

DRUGS (1)
  1. CORTICOTROPIN [Suspect]
     Active Substance: CORTICOTROPIN
     Indication: Pulmonary sarcoidosis
     Dosage: 80 UNITS
     Route: 058
     Dates: start: 20250820

REACTIONS (6)
  - Injection site discharge [Unknown]
  - Injection site erythema [Recovering/Resolving]
  - Injection site swelling [Unknown]
  - Injection site pruritus [Recovered/Resolved]
  - Injection site mass [Recovering/Resolving]
  - Injection site pain [Recovering/Resolving]

NARRATIVE: CASE EVENT DATE: 20250101
